FAERS Safety Report 15468584 (Version 2)
Quarter: 2019Q1

REPORT INFORMATION
  Report Type: Spontaneous
  Country: US (occurrence: US)
  Receive Date: 20181005
  Receipt Date: 20190222
  Transmission Date: 20190417
  Serious: Yes (Other)
  Sender: FDA-Public Use
  Company Number: US-SA-2018SA272507

PATIENT
  Age: 48 Year
  Sex: Female
  Weight: 91 kg

DRUGS (11)
  1. BENADRYL [Concomitant]
     Active Substance: DIPHENHYDRAMINE HYDROCHLORIDE
  2. COMPAZINE [Concomitant]
     Active Substance: PROCHLORPERAZINE MALEATE
  3. TAXOTERE [Suspect]
     Active Substance: DOCETAXEL
     Indication: BREAST CANCER FEMALE
     Dosage: 10 UNK, QCY
     Route: 042
     Dates: start: 20150803, end: 20150803
  4. TAXOTERE [Suspect]
     Active Substance: DOCETAXEL
     Dosage: UNK, QCY
     Route: 042
     Dates: start: 20151116, end: 20151116
  5. MOTRIN [Concomitant]
     Active Substance: IBUPROFEN
  6. EMLA [LIDOCAINE;PRILOCAINE] [Concomitant]
  7. PARAPLATIN [Concomitant]
     Active Substance: CARBOPLATIN
  8. DECADRON [Concomitant]
     Active Substance: DEXAMETHASONE
  9. VITAMIN B-6 [Concomitant]
     Active Substance: PYRIDOXINE
  10. MULTIVITAMIN [VITAMINS NOS] [Concomitant]
  11. ZOFRAN [Concomitant]
     Active Substance: ONDANSETRON HYDROCHLORIDE

REACTIONS (1)
  - Alopecia [Recovering/Resolving]

NARRATIVE: CASE EVENT DATE: 20150824
